FAERS Safety Report 15837205 (Version 1)
Quarter: 2019Q1

REPORT INFORMATION
  Report Type: Spontaneous
  Country: BR (occurrence: BR)
  Receive Date: 20190117
  Receipt Date: 20190117
  Transmission Date: 20190417
  Serious: Yes (Other)
  Sender: FDA-Public Use
  Company Number: BR-009507513-1901BRA003440

PATIENT
  Sex: Male

DRUGS (4)
  1. JANUMET XR [Suspect]
     Active Substance: METFORMIN HYDROCHLORIDE\SITAGLIPTIN PHOSPHATE
     Dosage: 2 TABLETS DAILY
     Route: 048
     Dates: start: 2018
  2. JANUMET XR [Suspect]
     Active Substance: METFORMIN HYDROCHLORIDE\SITAGLIPTIN PHOSPHATE
     Dosage: 1 TABLET DAILY
     Route: 048
     Dates: start: 2015, end: 2018
  3. PATZ [Concomitant]
  4. ROSULIB [Concomitant]
     Active Substance: ROSUVASTATIN

REACTIONS (2)
  - Inappropriate schedule of product administration [Recovered/Resolved]
  - Kaposi^s sarcoma [Unknown]

NARRATIVE: CASE EVENT DATE: 2015
